FAERS Safety Report 10129238 (Version 2)
Quarter: 2014Q2

REPORT INFORMATION
  Report Type: Spontaneous
  Country: US (occurrence: US)
  Receive Date: 20140428
  Receipt Date: 20140515
  Transmission Date: 20141212
  Serious: Yes (Death, Other)
  Sender: FDA-Public Use
  Company Number: US-ROCHE-1385347

PATIENT
  Sex: Male

DRUGS (11)
  1. AVASTIN [Suspect]
     Indication: EYE HAEMORRHAGE
     Route: 050
     Dates: start: 20060510, end: 200608
  2. LUCENTIS [Suspect]
     Indication: PRODUCT USED FOR UNKNOWN INDICATION
     Route: 065
  3. CIPRO [Suspect]
     Indication: SCROTAL INFECTION
     Route: 048
     Dates: start: 20060614
  4. NAPROSYN [Concomitant]
     Indication: ARTHRALGIA
     Route: 048
  5. ASPIRIN [Concomitant]
  6. ENALAPRIL [Concomitant]
     Indication: HYPERTENSION
     Route: 048
  7. FAMOTIDINE [Concomitant]
     Indication: ULCER
     Route: 048
  8. METFORMIN [Concomitant]
     Dosage: 5/500 MG
     Route: 065
  9. ACTOS [Concomitant]
     Route: 048
  10. VYTORIN [Concomitant]
     Route: 048
  11. KENALOG (UNITED STATES) [Concomitant]
     Dosage: 400 MG/ML
     Route: 065
     Dates: start: 200501, end: 200605

REACTIONS (13)
  - Coronary artery disease [Fatal]
  - Renal failure chronic [Fatal]
  - Hypertension [Fatal]
  - Hyperlipidaemia [Fatal]
  - Pulmonary hypertension [Unknown]
  - Blindness [Not Recovered/Not Resolved]
  - Atelectasis [Unknown]
  - Cardiomegaly [Unknown]
  - Pleural effusion [Unknown]
  - Scrotal infection [Unknown]
  - Eye infection [Unknown]
  - Debridement [Unknown]
  - Total lung capacity decreased [Unknown]
